FAERS Safety Report 23790872 (Version 1)
Quarter: 2024Q2

REPORT INFORMATION
  Report Type: Spontaneous
  Country: JP (occurrence: JP)
  Receive Date: 20240427
  Receipt Date: 20240427
  Transmission Date: 20240716
  Serious: Yes (Other)
  Sender: FDA-Public Use
  Company Number: JP-STRIDES ARCOLAB LIMITED-2024SP004921

PATIENT
  Age: 56 Year
  Sex: Male

DRUGS (20)
  1. PREDNISOLONE [Suspect]
     Active Substance: PREDNISOLONE
     Indication: Central nervous system lymphoma
     Dosage: UNK, CYCLICAL (100 MG/BODY WEIGHT FROM DAY 1 TO 5, TOTAL 6 CYCLES RECEIVED)
     Route: 065
  2. PREDNISOLONE [Suspect]
     Active Substance: PREDNISOLONE
     Indication: B-cell lymphoma
  3. METHOTREXATE [Suspect]
     Active Substance: METHOTREXATE
     Indication: Central nervous system lymphoma
     Dosage: 3500 MILLIGRAM/SQ. METER, CYCLICAL (RECEIVE ON DAY 15 OF THE CYCLE, A TOTAL OF 6 CYCLES)
     Route: 065
  4. METHOTREXATE [Suspect]
     Active Substance: METHOTREXATE
     Indication: B-cell lymphoma
  5. ETOPOSIDE [Suspect]
     Active Substance: ETOPOSIDE
     Indication: Central nervous system lymphoma
     Dosage: UNK, CYCLICAL
     Route: 065
  6. ETOPOSIDE [Suspect]
     Active Substance: ETOPOSIDE
     Indication: B-cell lymphoma
  7. RITUXIMAB [Suspect]
     Active Substance: RITUXIMAB
     Indication: Central nervous system lymphoma
     Dosage: 375 MILLIGRAM/SQ. METER, CYCLICAL (TOTAL 6 CYCLES RECEIVED)
     Route: 065
  8. RITUXIMAB [Suspect]
     Active Substance: RITUXIMAB
     Indication: B-cell lymphoma
  9. PIRARUBICIN [Suspect]
     Active Substance: PIRARUBICIN
     Indication: Central nervous system lymphoma
     Dosage: 50 MILLIGRAM/SQ. METER, CYCLICAL
     Route: 065
  10. PIRARUBICIN [Suspect]
     Active Substance: PIRARUBICIN
     Indication: B-cell lymphoma
  11. CYCLOPHOSPHAMIDE [Suspect]
     Active Substance: CYCLOPHOSPHAMIDE
     Indication: Central nervous system lymphoma
     Dosage: 750 MILLIGRAM/SQ. METER, CYCLICAL (RECEIVE A TOTAL OF 6 CYCLES)
     Route: 065
  12. CYCLOPHOSPHAMIDE [Suspect]
     Active Substance: CYCLOPHOSPHAMIDE
     Indication: B-cell lymphoma
  13. VINCRISTINE [Suspect]
     Active Substance: VINCRISTINE
     Indication: Central nervous system lymphoma
     Dosage: UNK, CYCLICAL (2 MG/BODY WEIGHT ON DAY 1 OF THE CYCLE (RECEIVED TOTAL OF 6 CYCLES))
     Route: 065
  14. VINCRISTINE [Suspect]
     Active Substance: VINCRISTINE
     Indication: B-cell lymphoma
  15. PLERIXAFOR [Suspect]
     Active Substance: PLERIXAFOR
     Indication: Central nervous system lymphoma
     Dosage: UNK, CYCLICAL
     Route: 065
  16. PLERIXAFOR [Suspect]
     Active Substance: PLERIXAFOR
     Indication: B-cell lymphoma
  17. THIOTEPA [Suspect]
     Active Substance: THIOTEPA
     Indication: Central nervous system lymphoma
     Dosage: 5 MILLIGRAM/KILOGRAM (RECEIVED AT HIGH DOSE ON DAYS -8, -7, -6 AND -5 PRIOR TO THE AUTO-HAEMATOPOIET
     Route: 065
  18. THIOTEPA [Suspect]
     Active Substance: THIOTEPA
     Indication: B-cell lymphoma
  19. BUSULFAN [Suspect]
     Active Substance: BUSULFAN
     Indication: Central nervous system lymphoma
     Dosage: 3.2 MILLIGRAM/KILOGRAM (RECEIVED AT HIGH DOSE ON DAYS -4 AND -3 PRIOR TO THE AUTO-HAEMATOPOIETIC STE
     Route: 065
  20. BUSULFAN [Suspect]
     Active Substance: BUSULFAN
     Indication: B-cell lymphoma

REACTIONS (2)
  - Febrile neutropenia [Unknown]
  - Off label use [Unknown]
